FAERS Safety Report 7497221-0 (Version None)
Quarter: 2011Q2

REPORT INFORMATION
  Report Type: 
  Country: None (occurrence: None)
  Receive Date: 20110523
  Receipt Date: 20110519
  Transmission Date: 20111010
  Serious: No
  Sender: FDA-Public Use
  Company Number: US-PFIZER INC-2011109092

PATIENT
  Sex: Female
  Weight: 79.819 kg

DRUGS (3)
  1. EFFEXOR [Suspect]
     Indication: DEPRESSION
     Dosage: UNK
     Route: 048
     Dates: start: 19940101, end: 19960101
  2. SYNTHROID [Concomitant]
     Indication: HYPERTHYROIDISM
     Dosage: 125 MCG DAILY
     Route: 048
  3. EFFEXOR [Suspect]
     Indication: BIPOLAR DISORDER

REACTIONS (1)
  - WEIGHT DECREASED [None]
